FAERS Safety Report 8271623-7 (Version None)
Quarter: 2012Q1

REPORT INFORMATION
  Report Type: 
  Country: None (occurrence: None)
  Receive Date: 20120327
  Receipt Date: 20100323
  Transmission Date: 20120608
  Serious: Yes (Other)
  Sender: FDA-Public Use
  Company Number: PHEH2009US18031

PATIENT
  Age: 70 Year
  Sex: Male
  Weight: 75.7 kg

DRUGS (12)
  1. ASPIRIN [Concomitant]
  2. GLEEVEC [Suspect]
     Dosage: 400 MG, DAILY, ORAL
     Route: 048
     Dates: start: 20090219
  3. GAS-X (SIMETICONE) [Concomitant]
  4. ATENOLOL [Concomitant]
  5. ANTACIDS (NO INGREDIENTS/SUBSTANCES) [Concomitant]
  6. LISINOPRIL [Concomitant]
  7. GLEEVEC [Suspect]
     Indication: CHRONIC MYELOID LEUKAEMIA
     Dosage: 400 MG, QD, ORAL ; 600 MG, DAILY
     Route: 048
     Dates: start: 20090219
  8. GLEEVEC [Suspect]
     Indication: CHRONIC MYELOID LEUKAEMIA
     Dosage: 400 MG, QD, ORAL ; 600 MG, DAILY
     Route: 048
     Dates: start: 20060101
  9. IMDUR [Concomitant]
  10. PLAVIX [Concomitant]
  11. PRAVASTATIN SODIUM [Concomitant]
  12. EXTRA STRENGTH TYLENOL [Concomitant]

REACTIONS (8)
  - ABDOMINAL PAIN UPPER [None]
  - CORONARY ARTERY DISEASE [None]
  - DIARRHOEA [None]
  - WHITE BLOOD CELL COUNT DECREASED [None]
  - FLATULENCE [None]
  - NAUSEA [None]
  - ERUCTATION [None]
  - CATHETERISATION CARDIAC [None]
